FAERS Safety Report 5479468-8 (Version None)
Quarter: 2007Q4

REPORT INFORMATION
  Report Type: 
  Country: None (occurrence: None)
  Receive Date: 20071008
  Receipt Date: 20071003
  Transmission Date: 20080405
  Serious: Yes (Hospitalization)
  Sender: FDA-Public Use
  Company Number: IT-ASTRAZENECA-2007SE05329

PATIENT
  Age: 35552 Day
  Sex: Female

DRUGS (8)
  1. SEROQUEL [Suspect]
     Indication: SENILE PSYCHOSIS
     Route: 048
     Dates: start: 20070621, end: 20070622
  2. DERMATRANS (GLYCERYL TRINITRATE) [Concomitant]
     Route: 062
     Dates: start: 20021218, end: 20070722
  3. OMEPRAZOLE [Concomitant]
     Route: 048
     Dates: start: 20011024, end: 20070722
  4. PRAVASELECT [Concomitant]
     Route: 048
     Dates: start: 20011024, end: 20070722
  5. ASPIRIN [Concomitant]
     Route: 048
     Dates: start: 19991207, end: 20070722
  6. GLICLAZIDE [Concomitant]
     Route: 048
     Dates: start: 20020521, end: 20070722
  7. NAPRILENE [Concomitant]
     Route: 048
     Dates: start: 20050525, end: 20070722
  8. LEXOTAN [Concomitant]
     Route: 048
     Dates: start: 20060808, end: 20070622

REACTIONS (4)
  - FALL [None]
  - LOSS OF CONSCIOUSNESS [None]
  - TRANSIENT ISCHAEMIC ATTACK [None]
  - VOMITING [None]
